FAERS Safety Report 8172455 (Version 5)
Quarter: 2012Q4

REPORT INFORMATION
  Report Type: 
  Country: GB (occurrence: GB)
  Receive Date: 20111007
  Receipt Date: 20120903
  Transmission Date: 20130627
  Serious: Yes (Life-Threatening, Hospitalization, Other)
  Sender: FDA-Public Use
  Company Number: PHFR2011GB05479

PATIENT
  Age: 61 Year
  Sex: Male
  Weight: 81.7 kg

DRUGS (10)
  1. CLOZARIL [Suspect]
     Indication: SCHIZOPHRENIA, PARANOID TYPE
     Dosage: 325 mg/ day
     Route: 048
     Dates: start: 20101029, end: 20110929
  2. TAMSULOSIN HYDROCHLORIDE [Concomitant]
     Indication: URINARY TRACT DISORDER
     Dosage: 400 ug/ day
     Route: 048
     Dates: start: 20110228
  3. SIMVASTATIN [Concomitant]
     Indication: BLOOD CHOLESTEROL INCREASED
     Dosage: 40 mg/day
     Route: 048
     Dates: start: 20110228
  4. DEKRISTOL [Concomitant]
     Indication: VITAMIN D DECREASED
     Dosage: 2 DF, every 4/52
     Route: 048
     Dates: start: 20110427
  5. OMEPRAZOLE [Concomitant]
     Indication: GASTROOESOPHAGEAL REFLUX DISEASE
     Dosage: 10 mg, BID
     Route: 048
     Dates: start: 20110811
  6. ESCITALOPRAM [Concomitant]
     Indication: DEPRESSION
     Dosage: 10 mg/ day
     Route: 048
     Dates: start: 20110228, end: 20110927
  7. HYOSCINE HYDROBROMIDE [Concomitant]
     Indication: SALIVARY HYPERSECRETION
     Dosage: 300 ug, TID
     Route: 048
     Dates: start: 20110228, end: 20110927
  8. FERROUS SULPHATE [Concomitant]
     Indication: IRON DEFICIENCY ANAEMIA
     Dosage: 200 mg, TID
     Route: 048
     Dates: start: 20110916, end: 20110927
  9. PALIPERIDONE [Concomitant]
     Route: 048
  10. OLANZAPINE [Concomitant]
     Route: 048

REACTIONS (14)
  - Sepsis [Recovered/Resolved]
  - Neuroleptic malignant syndrome [Recovered/Resolved]
  - Blood creatine phosphokinase increased [Recovered/Resolved]
  - Confusional state [Recovered/Resolved]
  - Pyrexia [Recovered/Resolved]
  - Disorientation [Recovered/Resolved]
  - Neutropenia [Recovered/Resolved]
  - Fall [Not Recovered/Not Resolved]
  - Gait disturbance [Not Recovered/Not Resolved]
  - C-reactive protein increased [Recovered/Resolved]
  - General physical health deterioration [Recovered/Resolved]
  - Colon cancer [Unknown]
  - Mental impairment [Unknown]
  - Anaemia [Not Recovered/Not Resolved]
